FAERS Safety Report 5016028-7 (Version None)
Quarter: 2006Q2

REPORT INFORMATION
  Report Type: 
  Country: None (occurrence: None)
  Receive Date: 20060531
  Receipt Date: 20060531
  Transmission Date: 20061013
  Serious: Yes (Death)
  Sender: FDA-Public Use
  Company Number: None

PATIENT
  Age: 63 Year
  Sex: Male

DRUGS (1)
  1. RIFAMPIN [Suspect]
     Dosage: 300 MG TID PO
     Route: 048
     Dates: start: 20060323, end: 20060416

REACTIONS (12)
  - ASTHENIA [None]
  - COMPLICATIONS OF TRANSPLANTED LIVER [None]
  - DRUG DISPENSING ERROR [None]
  - HEPATIC FAILURE [None]
  - INCORRECT DOSE ADMINISTERED [None]
  - JAUNDICE [None]
  - LIVER DISORDER [None]
  - LIVER TRANSPLANT [None]
  - OEDEMA PERIPHERAL [None]
  - PURULENCE [None]
  - SEPSIS [None]
  - WEIGHT DECREASED [None]
